FAERS Safety Report 8170824-6 (Version None)
Quarter: 2012Q1

REPORT INFORMATION
  Report Type: 
  Country: None (occurrence: None)
  Receive Date: 20120104
  Receipt Date: 20111012
  Transmission Date: 20120608
  Serious: No
  Sender: FDA-Public Use
  Company Number: 2011HGS-002633

PATIENT
  Age: 46 Year
  Sex: Female
  Weight: 88.4514 kg

DRUGS (8)
  1. MOBIC [Concomitant]
  2. BENLYSTA [Suspect]
     Indication: SYSTEMIC LUPUS ERYTHEMATOSUS
     Dosage: 1 IN 2 WK, INTRAVENOUS DRIP
     Route: 041
     Dates: start: 20110920
  3. PLAQUENIL (HYDROXYCHLOROQUINE SULFATE) (HYDROXYCHLOROQUINE SULFATE) [Concomitant]
  4. LOTREL (LOTREL) (AMLODIPINE, BENAZAPRIL HYDROCHLORIDE) [Concomitant]
  5. PREDNISONE [Concomitant]
  6. TYLENOL ARTHRITIS (PARACETAMOL) (PARACETAMOL) [Concomitant]
  7. CELLCEPT (MYCOPHENOLATE MOFETIL) (MYCOPHENOLATE MOFETIL) [Concomitant]
  8. CYMBALTA (DULOXETINE) (DULOXEITNE) [Concomitant]

REACTIONS (1)
  - ARTHRALGIA [None]
